FAERS Safety Report 6343671-5 (Version None)
Quarter: 2009Q3

REPORT INFORMATION
  Report Type: 
  Country: None (occurrence: None)
  Receive Date: 20090903
  Receipt Date: 20090903
  Transmission Date: 20100115
  Serious: Yes (Disabling, Other)
  Sender: FDA-Public Use
  Company Number: None

PATIENT
  Age: 71 Year
  Sex: Female
  Weight: 52.1637 kg

DRUGS (1)
  1. SIMVASTATIN [Suspect]
     Dosage: 1 PILL DAILY
     Dates: start: 20090801

REACTIONS (7)
  - ALOPECIA [None]
  - ASTHENIA [None]
  - DYSPNOEA [None]
  - NAIL DISORDER [None]
  - PRURITUS [None]
  - PYREXIA [None]
  - UNEVALUABLE EVENT [None]
